FAERS Safety Report 5455642-1 (Version None)
Quarter: 2007Q3

REPORT INFORMATION
  Report Type: 
  Country: None (occurrence: None)
  Receive Date: 20070918
  Receipt Date: 20070702
  Transmission Date: 20080115
  Serious: No
  Sender: FDA-Public Use
  Company Number: US-ASTRAZENECA-2006UW22326

PATIENT
  Age: 490 Month
  Sex: Female
  Weight: 73.6 kg

DRUGS (6)
  1. SEROQUEL [Suspect]
     Route: 048
     Dates: start: 20020801
  2. ABILIFY [Concomitant]
     Route: 048
     Dates: start: 19990101
  3. RISPERDAL [Concomitant]
     Route: 048
     Dates: start: 19980101
  4. LEXAPRO [Concomitant]
     Route: 048
  5. LORAZEPAM [Concomitant]
     Route: 048
  6. DEXATRIM [Concomitant]
     Indication: WEIGHT CONTROL
     Route: 048
     Dates: start: 19800101

REACTIONS (2)
  - DIABETES MELLITUS [None]
  - ILL-DEFINED DISORDER [None]
